FAERS Safety Report 5075559-4 (Version None)
Quarter: 2006Q3

REPORT INFORMATION
  Report Type: 
  Country: None (occurrence: None)
  Receive Date: 20060809
  Receipt Date: 20060619
  Transmission Date: 20061208
  Serious: Yes (Other)
  Sender: FDA-Public Use
  Company Number: DE-ROCHE-452550

PATIENT
  Age: 80 Year
  Sex: Female
  Weight: 75 kg

DRUGS (5)
  1. BONIVA [Suspect]
     Indication: OSTEOPOROSIS
     Route: 048
     Dates: start: 20060204
  2. BENALAPRIL [Concomitant]
     Dosage: DRUG NAME REPORTED AS BENALAPRIL 10
  3. MINIASAL [Concomitant]
  4. OSSOFORTIN FORTE [Concomitant]
  5. FOSAMAX [Concomitant]
     Dosage: DRUG NAME REPORTED AS FOSAMAX 70

REACTIONS (3)
  - ABDOMINAL PAIN [None]
  - GASTRIC HAEMORRHAGE [None]
  - MELAENA [None]
